FAERS Safety Report 19723706 (Version 2)
Quarter: 2021Q3

REPORT INFORMATION
  Report Type: Spontaneous
  Country: US (occurrence: US)
  Receive Date: 20210820
  Receipt Date: 20210901
  Transmission Date: 20211014
  Serious: Yes (Disabling, Other)
  Sender: FDA-Public Use
  Company Number: US-MTPC-MTDA2021-0019565

PATIENT
  Sex: Female

DRUGS (1)
  1. RADICAVA [Suspect]
     Active Substance: EDARAVONE
     Indication: AMYOTROPHIC LATERAL SCLEROSIS
     Dosage: STANDARD DOSING
     Route: 065

REACTIONS (3)
  - Feeding disorder [Unknown]
  - Disease progression [Not Recovered/Not Resolved]
  - Aphasia [Unknown]
